FAERS Safety Report 6328175-8 (Version None)
Quarter: 2009Q3

REPORT INFORMATION
  Report Type: 
  Country: None (occurrence: None)
  Receive Date: 20090825
  Receipt Date: 20081001
  Transmission Date: 20100115
  Serious: No
  Sender: FDA-Public Use
  Company Number: US-ABBOTT-08P-163-0479471-00

PATIENT
  Sex: Female
  Weight: 63.56 kg

DRUGS (10)
  1. SYNTHROID [Suspect]
     Indication: HYPOTHYROIDISM
     Route: 048
     Dates: start: 20080917
  2. SYNTHROID [Suspect]
     Route: 048
     Dates: end: 20080916
  3. SYNTHROID [Suspect]
     Route: 048
     Dates: start: 20000601
  4. DIPHENHYDRA. HCL W/PARACETAMOL/PSEUDOEPH. HCL [Concomitant]
     Indication: PRURITUS
     Route: 048
  5. NARINE [Concomitant]
     Indication: HYPERSENSITIVITY
     Route: 048
     Dates: start: 20050101
  6. MELOXICAM [Concomitant]
     Indication: PAIN
     Route: 048
     Dates: start: 20050101
  7. DOMPERIDONE [Concomitant]
     Indication: GASTROOESOPHAGEAL REFLUX DISEASE
     Route: 048
     Dates: start: 20050101
  8. MULTI-VITAMIN [Concomitant]
     Indication: VITAMIN SUPPLEMENTATION
     Route: 048
  9. RABEPRAZOLE SODIUM [Concomitant]
     Indication: GASTROOESOPHAGEAL REFLUX DISEASE
     Route: 048
     Dates: start: 20030101
  10. PRELEIF [Concomitant]
     Indication: FLATULENCE
     Route: 048

REACTIONS (4)
  - FLUSHING [None]
  - PRURITUS [None]
  - SLUGGISHNESS [None]
  - URTICARIA [None]
